FAERS Safety Report 13586855 (Version 1)
Quarter: 2017Q2

REPORT INFORMATION
  Report Type: Spontaneous
  Country: US (occurrence: US)
  Receive Date: 20170526
  Receipt Date: 20170526
  Transmission Date: 20170830
  Serious: No
  Sender: FDA-Public Use
  Company Number: US-ROCHE-1200222

PATIENT
  Sex: Male

DRUGS (1)
  1. ROVALCYTE [Suspect]
     Active Substance: VALGANCICLOVIR HYDROCHLORIDE
     Indication: PRODUCT USED FOR UNKNOWN INDICATION
     Dosage: TAKING SINCE 4YEARS
     Route: 065

REACTIONS (2)
  - Lymphopenia [Unknown]
  - CD4 lymphocytes decreased [Unknown]
